FAERS Safety Report 7095464-1 (Version None)
Quarter: 2010Q4

REPORT INFORMATION
  Report Type: 
  Country: None (occurrence: None)
  Receive Date: 20101103
  Receipt Date: 20100901
  Transmission Date: 20110411
  Serious: Yes (Other)
  Sender: FDA-Public Use
  Company Number: 2010AP001879

PATIENT
  Age: 72 Year
  Sex: Male

DRUGS (3)
  1. AMLODIPINE BESYLATE [Suspect]
     Indication: HYPERTENSION
     Dosage: 5 MG; QD PO
     Route: 048
     Dates: start: 20100723, end: 20100727
  2. ATORVASTATIN (ATORVASTATIN) [Concomitant]
  3. DICLOFENAC SODIUM [Concomitant]

REACTIONS (1)
  - SKIN REACTION [None]
